FAERS Safety Report 4493976-8 (Version None)
Quarter: 2004Q4

REPORT INFORMATION
  Report Type: 
  Country: None (occurrence: None)
  Receive Date: 20041102
  Receipt Date: 20041020
  Transmission Date: 20050328
  Serious: Yes (Hospitalization, Other)
  Sender: FDA-Public Use
  Company Number: US_990826843

PATIENT
  Age: 78 Year
  Sex: Female
  Weight: 86.1834 kg

DRUGS (7)
  1. HUMALOG [Suspect]
  2. HUMULIN 70/30 [Suspect]
     Indication: DIABETES MELLITUS
     Dosage: 24 U/2DAY
     Dates: start: 19981101
  3. PLAVIX [Concomitant]
  4. ASPIRIN [Concomitant]
  5. HUMULIN N [Suspect]
     Indication: DIABETES MELLITUS
     Dates: start: 20000601
  6. THYROID TAB [Concomitant]
  7. BLOOD PRESSURE MEDICATION [Concomitant]

REACTIONS (25)
  - BLINDNESS [None]
  - BLOOD GLUCOSE FLUCTUATION [None]
  - CONVULSION [None]
  - DAWN PHENOMENON [None]
  - DIABETIC EYE DISEASE [None]
  - DIARRHOEA [None]
  - EYE DISORDER [None]
  - HYPERGLYCAEMIA [None]
  - HYPERHIDROSIS [None]
  - INJECTION SITE HAEMORRHAGE [None]
  - INJECTION SITE PAIN [None]
  - INJECTION SITE REACTION [None]
  - LUNG NEOPLASM MALIGNANT [None]
  - MACULAR DEGENERATION [None]
  - MEDICATION ERROR [None]
  - METASTASES TO CENTRAL NERVOUS SYSTEM [None]
  - NAUSEA [None]
  - NEUROPATHY [None]
  - PAIN IN EXTREMITY [None]
  - PALPITATIONS [None]
  - PHARMACEUTICAL PRODUCT COMPLAINT [None]
  - TRANSIENT ISCHAEMIC ATTACK [None]
  - TREMOR [None]
  - VOCAL CORD PARALYSIS [None]
  - WEIGHT INCREASED [None]
